FAERS Safety Report 8475845-1 (Version None)
Quarter: 2012Q2

REPORT INFORMATION
  Report Type: 
  Country: None (occurrence: None)
  Receive Date: 20120628
  Receipt Date: 20120621
  Transmission Date: 20120825
  Serious: Yes (Hospitalization)
  Sender: FDA-Public Use
  Company Number: DE-ABBOTT-12P-062-0948565-00

PATIENT
  Age: 73 Year
  Sex: Male
  Weight: 91 kg

DRUGS (1)
  1. ZEMPLAR [Suspect]
     Indication: HYPOPARATHYROIDISM SECONDARY
     Route: 048
     Dates: start: 20100603

REACTIONS (5)
  - RENAL FAILURE CHRONIC [None]
  - RENAL FAILURE [None]
  - OEDEMA PERIPHERAL [None]
  - BRONCHOPNEUMONIA [None]
  - RENAL FAILURE ACUTE [None]
